FAERS Safety Report 21438130 (Version 1)
Quarter: 2022Q4

REPORT INFORMATION
  Report Type: Spontaneous
  Country: FR (occurrence: FR)
  Receive Date: 20221011
  Receipt Date: 20221011
  Transmission Date: 20230113
  Serious: Yes (Hospitalization, Other)
  Sender: FDA-Public Use
  Company Number: FR-AFSSAPS-LL20222710

PATIENT
  Age: 53 Year
  Sex: Male

DRUGS (2)
  1. FUROSEMIDE [Suspect]
     Active Substance: FUROSEMIDE
     Indication: Enterocolitis haemorrhagic
     Dosage: 80 MILLIGRAM
     Route: 042
     Dates: start: 20220816
  2. KEPPRA [Suspect]
     Active Substance: LEVETIRACETAM
     Indication: Status epilepticus
     Dosage: UNK
     Route: 042
     Dates: start: 20220903

REACTIONS (2)
  - Encephalopathy [Not Recovered/Not Resolved]
  - Condition aggravated [Not Recovered/Not Resolved]

NARRATIVE: CASE EVENT DATE: 20220901
